FAERS Safety Report 5569025-7 (Version None)
Quarter: 2007Q4

REPORT INFORMATION
  Report Type: 
  Country: None (occurrence: None)
  Receive Date: 20071220
  Receipt Date: 20070517
  Transmission Date: 20080405
  Serious: No
  Sender: FDA-Public Use
  Company Number: A0651763A

PATIENT
  Sex: Male

DRUGS (2)
  1. AVODART [Suspect]
  2. NO CONCURRENT MEDICATION [Concomitant]

REACTIONS (1)
  - DRUG INEFFECTIVE [None]
